FAERS Safety Report 10643080 (Version 1)
Quarter: 2014Q4

REPORT INFORMATION
  Report Type: Spontaneous
  Country: US (occurrence: None)
  Receive Date: 20141121
  Receipt Date: 20141121
  Transmission Date: 20150529
  Serious: No
  Sender: FDA-Public Use
  Company Number: 163-10004-14080642

PATIENT
  Age: 47 Year
  Sex: Female
  Weight: 120.2 kg

DRUGS (5)
  1. MEDROL(METHYLPREDNISOLONE) [Concomitant]
  2. OTEZLA [Suspect]
     Active Substance: APREMILAST
     Indication: PSORIATIC ARTHROPATHY
     Route: 048
     Dates: start: 20140703
  3. METHOTREXATE(METHOTREXATE) [Concomitant]
  4. PREDNISONE(PREDNISONE) [Concomitant]
  5. FOLIC ACID(FOLIC ACID) [Concomitant]

REACTIONS (2)
  - Headache [None]
  - Vomiting [None]

NARRATIVE: CASE EVENT DATE: 20140705
